FAERS Safety Report 6445984-5 (Version None)
Quarter: 2009Q4

REPORT INFORMATION
  Report Type: 
  Country: None (occurrence: None)
  Receive Date: 20091119
  Receipt Date: 20090526
  Transmission Date: 20100525
  Serious: No
  Sender: FDA-Public Use
  Company Number: A0786127A

PATIENT
  Age: 47 Year
  Sex: Male

DRUGS (4)
  1. WELLBUTRIN SR [Suspect]
     Indication: ANXIETY
     Dosage: 150MG TWICE PER DAY
     Route: 048
     Dates: start: 20090401, end: 20090401
  2. HYDROXYCHLOROQUINE SULFATE [Concomitant]
  3. METHOTREXATE [Concomitant]
  4. UNKNOWN ANALGESIC WITH CODEINE [Concomitant]

REACTIONS (6)
  - CRYING [None]
  - DEPRESSION [None]
  - FEELING JITTERY [None]
  - MEMORY IMPAIRMENT [None]
  - MORBID THOUGHTS [None]
  - NIGHTMARE [None]
